FAERS Safety Report 18653252 (Version 1)
Quarter: 2020Q4

REPORT INFORMATION
  Report Type: Spontaneous
  Country: US (occurrence: US)
  Receive Date: 20201223
  Receipt Date: 20201223
  Transmission Date: 20210114
  Serious: Yes (Life-Threatening, Hospitalization, Other)
  Sender: FDA-Public Use
  Company Number: US-GLAXOSMITHKLINE-US2020GSK252969

PATIENT
  Age: 14 Year
  Sex: Male
  Weight: 73 kg

DRUGS (2)
  1. LORAZEPAM. [Suspect]
     Active Substance: LORAZEPAM
     Indication: SEIZURE
     Dosage: 4 MG (THREE DOSES)
     Route: 042
  2. BUPROPION. [Suspect]
     Active Substance: BUPROPION
     Indication: DEPRESSION
     Dosage: UNK
     Route: 048

REACTIONS (13)
  - Serotonin syndrome [Recovered/Resolved]
  - Status epilepticus [Recovered/Resolved]
  - Intentional overdose [Unknown]
  - Drug ineffective [Unknown]
  - Autonomic nervous system imbalance [Recovered/Resolved]
  - Tremor [Recovered/Resolved]
  - Clonus [Recovered/Resolved]
  - Mental status changes [Recovered/Resolved]
  - Suicide attempt [Unknown]
  - Agitation [Recovered/Resolved]
  - Mydriasis [Recovered/Resolved]
  - Confusional state [Recovered/Resolved]
  - Seizure [Recovered/Resolved]
